FAERS Safety Report 8436093-4 (Version None)
Quarter: 2012Q2

REPORT INFORMATION
  Report Type: 
  Country: None (occurrence: None)
  Receive Date: 20120614
  Receipt Date: 20120608
  Transmission Date: 20120825
  Serious: Yes (Death)
  Sender: FDA-Public Use
  Company Number: ES-ROCHE-1076952

PATIENT
  Age: 60 Year
  Sex: Male

DRUGS (9)
  1. VFEND [Concomitant]
     Indication: FUNGAL INFECTION
     Route: 048
     Dates: start: 20120416, end: 20120418
  2. VESANOID [Suspect]
     Indication: ACUTE PROMYELOCYTIC LEUKAEMIA
     Route: 048
     Dates: start: 20120413, end: 20120418
  3. KONAKION [Concomitant]
     Route: 042
     Dates: start: 20120413, end: 20120418
  4. POLARAMINE [Concomitant]
     Route: 042
     Dates: start: 20120416, end: 20120416
  5. ONDANSETRON [Concomitant]
     Indication: VOMITING
     Route: 042
     Dates: start: 20120414, end: 20120418
  6. OMEPRAZOLE [Concomitant]
     Indication: PROPHYLAXIS AGAINST GASTROINTESTINAL ULCER
     Route: 048
     Dates: start: 20120413, end: 20120418
  7. MEROPENEM [Concomitant]
     Indication: FEBRILE NEUTROPENIA
     Route: 042
     Dates: start: 20120414, end: 20120418
  8. IPRATROPIUM BROMIDE [Concomitant]
     Indication: BRONCHOSPASM
     Route: 045
     Dates: start: 20120416, end: 20120418
  9. ACTOCORTINA [Concomitant]
     Route: 042
     Dates: start: 20120416, end: 20120416

REACTIONS (1)
  - HAEMORRHAGIC CEREBRAL INFARCTION [None]
